FAERS Safety Report 5211158-9 (Version None)
Quarter: 2006Q4

REPORT INFORMATION
  Report Type: 
  Country: None (occurrence: None)
  Receive Date: 20061114
  Receipt Date: 20060822
  Transmission Date: 20070319
  Serious: No
  Sender: FDA-Public Use
  Company Number: S06-USA-03423-01

PATIENT
  Age: 79 Year
  Sex: Male

DRUGS (9)
  1. NAMENDA [Suspect]
     Indication: MENTAL IMPAIRMENT
     Dosage: 5 MG BID PO
     Route: 048
     Dates: start: 20060815, end: 20060821
  2. NAMENDA [Suspect]
     Indication: MENTAL IMPAIRMENT
     Dosage: 15 MG QD PO
     Route: 048
     Dates: start: 20060822
  3. NAMENDA [Suspect]
     Indication: MENTAL IMPAIRMENT
     Dosage: 5 MG QD PO
     Route: 048
     Dates: start: 20060808, end: 20060814
  4. ARICEPT [Concomitant]
  5. TERAZOSIN HCL [Concomitant]
  6. ENALAPRIL MALEATE [Concomitant]
  7. HYDROCHLOROTHIAZIDE [Concomitant]
  8. ASPIRIN [Concomitant]
  9. FOLTX (FOLIC ACID/VITAMIN B12/VITAMIN B6) [Concomitant]

REACTIONS (2)
  - ABNORMAL DREAMS [None]
  - VITREOUS FLOATERS [None]
